FAERS Safety Report 8472068-7 (Version None)
Quarter: 2012Q2

REPORT INFORMATION
  Report Type: 
  Country: None (occurrence: None)
  Receive Date: 20120323
  Receipt Date: 20110830
  Transmission Date: 20120825
  Serious: Yes (Other)
  Sender: FDA-Public Use
  Company Number: 163-21880-11090092

PATIENT
  Age: 73 Year
  Sex: Male
  Weight: 52.1637 kg

DRUGS (13)
  1. ALBUTEROL [Concomitant]
  2. ZOCOR [Concomitant]
  3. REVLIMID [Suspect]
     Indication: MULTIPLE MYELOMA
     Dosage: 15 MG, 1 IN 1 D, PO ; 25 MG, DAILY DAYS 1-21, PO ; 15 MG, DAILY DAYS 1-21, PO
     Route: 048
     Dates: start: 20110415, end: 20110830
  4. REVLIMID [Suspect]
     Indication: MULTIPLE MYELOMA
     Dosage: 15 MG, 1 IN 1 D, PO ; 25 MG, DAILY DAYS 1-21, PO ; 15 MG, DAILY DAYS 1-21, PO
     Route: 048
     Dates: start: 20110901
  5. REVLIMID [Suspect]
     Indication: MULTIPLE MYELOMA
     Dosage: 15 MG, 1 IN 1 D, PO ; 25 MG, DAILY DAYS 1-21, PO ; 15 MG, DAILY DAYS 1-21, PO
     Route: 048
     Dates: start: 20081101
  6. AVODART [Concomitant]
  7. CALCIUM CARBONATE [Concomitant]
  8. MARINOL [Concomitant]
  9. ASPIRIN [Concomitant]
  10. ALLOPURINOL [Concomitant]
  11. DEXAMETHASONE [Concomitant]
  12. ZITHROMAX [Concomitant]
  13. IVIG (IMMUNOGLOBULIN G HUMAN) [Concomitant]

REACTIONS (2)
  - LEUKOPENIA [None]
  - NEUTROPHIL COUNT DECREASED [None]
